FAERS Safety Report 17812272 (Version 1)
Quarter: 2020Q2

REPORT INFORMATION
  Report Type: Spontaneous
  Country: FR (occurrence: FR)
  Receive Date: 20200521
  Receipt Date: 20200521
  Transmission Date: 20200714
  Serious: Yes (Other)
  Sender: FDA-Public Use
  Company Number: FR-MYLANLABS-2020M1049231

PATIENT
  Age: 62 Year
  Sex: Female
  Weight: 65 kg

DRUGS (5)
  1. LINEZOLIDE KABI [Suspect]
     Active Substance: LINEZOLID
     Indication: PROPHYLAXIS
     Dosage: 1200 MILLIGRAM
     Route: 041
     Dates: start: 20200326, end: 20200329
  2. LOPINAVIR/RITONAVIR MYLAN [Suspect]
     Active Substance: LOPINAVIR\RITONAVIR
     Indication: CORONAVIRUS INFECTION
     Dosage: 4 DOSAGE FORM
     Route: 048
     Dates: start: 20200324, end: 20200329
  3. CEFOTAXIME [Suspect]
     Active Substance: CEFOTAXIME SODIUM
     Indication: PROPHYLAXIS
     Dosage: 3 GRAM
     Route: 042
     Dates: start: 20200323, end: 20200402
  4. AZITHROMYCINE SANDOZ /00944301/ [Suspect]
     Active Substance: AZITHROMYCIN
     Indication: PROPHYLAXIS
     Dosage: 250 MILLIGRAM
     Route: 048
     Dates: start: 20200323, end: 20200402
  5. LINEZOLIDE [Suspect]
     Active Substance: LINEZOLID
     Indication: PROPHYLAXIS
     Dosage: 1200 MILLIGRAM
     Route: 048
     Dates: start: 20200330

REACTIONS (3)
  - Hepatocellular injury [Recovered/Resolved]
  - Off label use [Unknown]
  - Gamma-glutamyltransferase increased [Recovered/Resolved]

NARRATIVE: CASE EVENT DATE: 20200401
